FAERS Safety Report 6977291-6 (Version None)
Quarter: 2010Q3

REPORT INFORMATION
  Report Type: 
  Country: None (occurrence: None)
  Receive Date: 20100910
  Receipt Date: 20100906
  Transmission Date: 20110219
  Serious: Yes (Hospitalization)
  Sender: FDA-Public Use
  Company Number: IT-BAYER-201038631GPV

PATIENT
  Age: 81 Year
  Sex: Female

DRUGS (7)
  1. NIMOTOP [Suspect]
     Indication: HYPERTENSION
     Route: 048
     Dates: start: 20090101, end: 20100628
  2. TRIATEC [Interacting]
     Indication: HYPERTENSION
     Route: 048
     Dates: start: 20090101, end: 20100628
  3. SOTALEX [Interacting]
     Indication: HYPERTENSION
     Route: 048
     Dates: start: 20090101, end: 20100628
  4. PLACTIDIL [Concomitant]
     Route: 048
  5. LORAZEPAM [Concomitant]
     Route: 048
  6. SPIRIVA [Concomitant]
     Route: 055
  7. FLIXOTIDE [Concomitant]
     Route: 055

REACTIONS (1)
  - SYNCOPE [None]
